FAERS Safety Report 21835965 (Version 1)
Quarter: 2023Q1

REPORT INFORMATION
  Report Type: Spontaneous
  Country: US (occurrence: US)
  Receive Date: 20230109
  Receipt Date: 20230109
  Transmission Date: 20230418
  Serious: No
  Sender: FDA-Public Use
  Company Number: US-BRISTOL-MYERS SQUIBB COMPANY-2023-002814

PATIENT
  Age: 85 Year
  Sex: Female
  Weight: 55.61 kg

DRUGS (1)
  1. LENALIDOMIDE [Suspect]
     Active Substance: LENALIDOMIDE
     Indication: Plasma cell myeloma
     Dosage: FREQ: QD 21D ON, 7D OFF
     Route: 048

REACTIONS (2)
  - Weight decreased [Unknown]
  - Asthenia [Unknown]
